FAERS Safety Report 11122789 (Version 2)
Quarter: 2015Q3

REPORT INFORMATION
  Report Type: Spontaneous
  Country: US (occurrence: US)
  Receive Date: 20150519
  Receipt Date: 20150722
  Transmission Date: 20151125
  Serious: Yes (Hospitalization, Other)
  Sender: FDA-Public Use
  Company Number: US-PFIZER INC-2015166520

PATIENT
  Age: 61 Year
  Sex: Male

DRUGS (4)
  1. ANDROGEL [Suspect]
     Active Substance: TESTOSTERONE
     Indication: HORMONE REPLACEMENT THERAPY
     Dosage: UNK, AS PRESCRIBED
     Dates: start: 20090504, end: 20130312
  2. DEPO-TESTOSTERONE [Suspect]
     Active Substance: TESTOSTERONE CYPIONATE
     Indication: HORMONE REPLACEMENT THERAPY
     Dosage: UNK, AS PRESCRIBED
     Dates: start: 20130614, end: 20140124
  3. DEPO-TESTOSTERONE [Suspect]
     Active Substance: TESTOSTERONE CYPIONATE
     Indication: ASTHENIA
  4. ANDROGEL [Suspect]
     Active Substance: TESTOSTERONE
     Indication: ASTHENIA

REACTIONS (3)
  - Thrombophlebitis [Unknown]
  - Deep vein thrombosis [Unknown]
  - Thrombophlebitis superficial [Unknown]

NARRATIVE: CASE EVENT DATE: 2013
